FAERS Safety Report 19739110 (Version 1)
Quarter: 2021Q3

REPORT INFORMATION
  Report Type: Spontaneous
  Country: IN (occurrence: IN)
  Receive Date: 20210824
  Receipt Date: 20210824
  Transmission Date: 20211014
  Serious: Yes (Death, Other)
  Sender: FDA-Public Use
  Company Number: IN-PFIZER INC-2018227756

PATIENT
  Age: 40 Year
  Sex: Female

DRUGS (13)
  1. LETROZOLE. [Suspect]
     Active Substance: LETROZOLE
     Indication: BREAST CANCER METASTATIC
     Dosage: 2.5MG ONCE DAILY (IN NIGHT)
  2. SHELCAL [Concomitant]
     Active Substance: CALCIUM CARBONATE\CHOLECALCIFEROL
     Dosage: 500 MG, 1X/DAY (IN MORNING)
  3. PALBACE [Suspect]
     Active Substance: PALBOCICLIB
     Dosage: 125 MG, ONCE DAILY (AFTER FOOD IN AFTERNOON)
     Route: 048
     Dates: start: 20180512, end: 20180601
  4. KABIPRO [Concomitant]
     Dosage: UNK, 3X/DAY (IN MILK OR WATER 3 TSP 3 TIMES DAILY)
     Route: 048
  5. PALBACE [Suspect]
     Active Substance: PALBOCICLIB
     Dosage: 125 MG, ONCE DAILY (AFTER FOOD IN AFTERNOON)
     Route: 048
     Dates: start: 20180822, end: 20180911
  6. PALBACE [Suspect]
     Active Substance: PALBOCICLIB
     Dosage: 125 MG, ONCE DAILY
     Dates: start: 20170726, end: 20191121
  7. ZOBONE [Concomitant]
     Active Substance: ZOLEDRONIC ACID
     Dosage: UNK
  8. PALBACE [Suspect]
     Active Substance: PALBOCICLIB
     Indication: BREAST CANCER METASTATIC
     Dosage: 125 MG, ONCE DAILY
     Route: 048
     Dates: start: 20170712
  9. PALBACE [Suspect]
     Active Substance: PALBOCICLIB
     Dosage: 125 MG, ONCE DAILY (AFTER FOOD IN AFTERNOON)
     Route: 048
     Dates: start: 20180718, end: 20180807
  10. CROCIN [PARACETAMOL] [Concomitant]
     Dosage: 1 DF, 1X/DAY (AT NIGHT AS NEEDED (SOS)
  11. HAEMUP [Concomitant]
     Dosage: UNK, 1X/DAY (ONCE DAILY IN AFTERNOON)
  12. ULTRACET [Concomitant]
     Active Substance: ACETAMINOPHEN\TRAMADOL HYDROCHLORIDE
     Indication: PAIN
     Dosage: UNK, 3X/DAY
  13. A TO Z [Concomitant]
     Active Substance: MINERALS\VITAMINS
     Dosage: UNK, 1X/DAY (ONCE DAILY IN MORNING)

REACTIONS (4)
  - Death [Fatal]
  - Osteolysis [Unknown]
  - Carbohydrate antigen 15-3 increased [Unknown]
  - Joint stiffness [Unknown]

NARRATIVE: CASE EVENT DATE: 2018
